FAERS Safety Report 12216907 (Version 3)
Quarter: 2016Q2

REPORT INFORMATION
  Report Type: Spontaneous
  Country: IL (occurrence: IL)
  Receive Date: 20160329
  Receipt Date: 20160531
  Transmission Date: 20160815
  Serious: Yes (Death, Other)
  Sender: FDA-Public Use
  Company Number: IL-ACTELION-A-CH2016-133516

PATIENT
  Age: 65 Year
  Sex: Female

DRUGS (2)
  1. TYVASO [Suspect]
     Active Substance: TREPROSTINIL
     Indication: PULMONARY ARTERIAL HYPERTENSION
     Dosage: UNK
     Route: 055
     Dates: start: 201511, end: 20160522
  2. TRACLEER [Suspect]
     Active Substance: BOSENTAN
     Indication: PULMONARY ARTERIAL HYPERTENSION
     Dosage: 125 MG, BID
     Route: 048
     Dates: start: 201504, end: 201604

REACTIONS (6)
  - Hepatic enzyme increased [Unknown]
  - Dyspnoea [Unknown]
  - Aspartate aminotransferase increased [Unknown]
  - Blood bilirubin increased [Unknown]
  - Chromaturia [Unknown]
  - Pancreatic carcinoma [Fatal]

NARRATIVE: CASE EVENT DATE: 201504
